FAERS Safety Report 20554342 (Version 1)
Quarter: 2022Q1

REPORT INFORMATION
  Report Type: Spontaneous
  Country: JP (occurrence: JP)
  Receive Date: 20220304
  Receipt Date: 20220304
  Transmission Date: 20220423
  Serious: Yes (Death)
  Sender: FDA-Public Use
  Company Number: JP-GILEAD-2022-0569882

PATIENT
  Age: 79 Year
  Sex: Male
  Weight: 43.7 kg

DRUGS (12)
  1. VEKLURY [Suspect]
     Active Substance: REMDESIVIR
     Indication: COVID-19
     Dosage: 200 MG
     Route: 041
     Dates: start: 20220207, end: 20220207
  2. VEKLURY [Suspect]
     Active Substance: REMDESIVIR
     Dosage: 100 MG
     Route: 041
     Dates: start: 20220208, end: 20220211
  3. HEPARIN CALCIUM [Suspect]
     Active Substance: HEPARIN CALCIUM
     Indication: Thrombosis prophylaxis
     Dosage: 5000 IU, BID
     Route: 058
     Dates: start: 20220207, end: 20220214
  4. BISOPROLOL [Concomitant]
     Active Substance: BISOPROLOL
     Dosage: UNK
     Route: 062
     Dates: end: 20220215
  5. FUROSEMIDE [Concomitant]
     Active Substance: FUROSEMIDE
     Dosage: UNK
     Route: 050
     Dates: end: 20220215
  6. LANSOPRAZOLE [Concomitant]
     Active Substance: LANSOPRAZOLE
     Dosage: UNK
     Route: 050
     Dates: end: 20220215
  7. PHENYTOIN [Concomitant]
     Active Substance: PHENYTOIN
     Dosage: UNK
     Route: 050
     Dates: end: 20220215
  8. CILOSTAZOL [Concomitant]
     Active Substance: CILOSTAZOL
     Dosage: UNK
     Route: 050
     Dates: end: 20220214
  9. AMPICILLIN SODIUM\SULBACTAM SODIUM [Concomitant]
     Active Substance: AMPICILLIN SODIUM\SULBACTAM SODIUM
     Dosage: UNK
     Route: 042
     Dates: start: 20220207, end: 20220215
  10. SOLITA-T1 [Concomitant]
     Dosage: UNK
     Route: 042
     Dates: start: 20220207, end: 20220210
  11. DEXAMETHASONE SODIUM PHOSPHATE [Concomitant]
     Active Substance: DEXAMETHASONE SODIUM PHOSPHATE
     Dosage: UNK
     Route: 042
     Dates: start: 20220208, end: 20220215
  12. AMINO ACIDS\DEXTROSE\ELECTROLYTES NOS\VITAMINS [Concomitant]
     Active Substance: AMINO ACIDS\DEXTROSE\ELECTROLYTES NOS\VITAMINS
     Dosage: UNK
     Route: 042
     Dates: start: 20220211, end: 20220215

REACTIONS (1)
  - International normalised ratio increased [Fatal]

NARRATIVE: CASE EVENT DATE: 20220214
